FAERS Safety Report 5983095-3 (Version None)
Quarter: 2008Q4

REPORT INFORMATION
  Report Type: 
  Country: None (occurrence: None)
  Receive Date: 20081204
  Receipt Date: 20081204
  Transmission Date: 20090506
  Serious: Yes (Other)
  Sender: FDA-Public Use
  Company Number: None

PATIENT
  Age: 52 Year
  Sex: Female
  Weight: 68.9467 kg

DRUGS (2)
  1. ACTONEL [Suspect]
     Indication: OSTEOPOROSIS
     Dosage: 35 MG 1 X WEEKLY PO
     Route: 048
     Dates: start: 20081102, end: 20081130
  2. ALENDRONATE SODIUM [Suspect]
     Dosage: 70 MG. 1 X WEEKLY PO
     Route: 048
     Dates: start: 20080701, end: 20080901

REACTIONS (7)
  - ANGINA PECTORIS [None]
  - ARRHYTHMIA [None]
  - ARTHRALGIA [None]
  - BONE PAIN [None]
  - BURSITIS [None]
  - CHEST PAIN [None]
  - TACHYCARDIA [None]
